FAERS Safety Report 24806862 (Version 1)
Quarter: 2025Q1

REPORT INFORMATION
  Report Type: Spontaneous
  Country: US (occurrence: US)
  Receive Date: 20250104
  Receipt Date: 20250104
  Transmission Date: 20250408
  Serious: No
  Sender: DAIICHI
  Company Number: US-DAIICHI SANKYO, INC.-DS-2025-117929-USAA

PATIENT
  Age: 51 Year
  Sex: Female

DRUGS (3)
  1. ENHERTU [Suspect]
     Active Substance: FAM-TRASTUZUMAB DERUXTECAN-NXKI
     Indication: HER2 positive breast cancer
     Route: 065
  2. ENHERTU [Suspect]
     Active Substance: FAM-TRASTUZUMAB DERUXTECAN-NXKI
     Route: 065
  3. ENHERTU [Suspect]
     Active Substance: FAM-TRASTUZUMAB DERUXTECAN-NXKI
     Route: 065

REACTIONS (3)
  - Paraesthesia [Recovering/Resolving]
  - Loss of personal independence in daily activities [Recovering/Resolving]
  - Axonal neuropathy [Unknown]
